FAERS Safety Report 5355262-3 (Version None)
Quarter: 2007Q2

REPORT INFORMATION
  Report Type: 
  Country: None (occurrence: None)
  Receive Date: 20070611
  Receipt Date: 20070605
  Transmission Date: 20071010
  Serious: Yes (Hospitalization)
  Sender: FDA-Public Use
  Company Number: S07-USA-01174-01

PATIENT
  Age: 43 Year
  Sex: Female

DRUGS (6)
  1. CAMPRAL [Suspect]
     Indication: ALCOHOLISM
     Dosage: 666 MG TID PO
     Route: 048
     Dates: start: 20061201, end: 20070301
  2. PROZAC [Suspect]
     Indication: DEPRESSION
     Dosage: 60 MG QD
     Dates: start: 20061201, end: 20070301
  3. PROZAC [Suspect]
     Indication: DEPRESSION
     Dosage: 60 MG QD
     Dates: start: 20070101
  4. BUSPAR [Concomitant]
  5. PROTONIX [Concomitant]
  6. DOXEPIN HCL [Concomitant]

REACTIONS (4)
  - GASTROINTESTINAL HAEMORRHAGE [None]
  - HAEMORRHOIDS [None]
  - THROMBOCYTOPENIA [None]
  - WHITE BLOOD CELL COUNT DECREASED [None]
